FAERS Safety Report 5283383-2 (Version None)
Quarter: 2007Q1

REPORT INFORMATION
  Report Type: 
  Country: None (occurrence: None)
  Receive Date: 20061226
  Receipt Date: 20061118
  Transmission Date: 20070707
  Serious: No
  Sender: FDA-Public Use
  Company Number: 2006PV025491

PATIENT
  Age: 71 Year
  Sex: Female
  Weight: 77.1115 kg

DRUGS (4)
  1. SYMLIN [Suspect]
     Indication: DIABETES MELLITUS NON-INSULIN-DEPENDENT
     Dosage: 66 MCG;TID;SC
     Route: 058
     Dates: start: 20061101
  2. LANTUS [Concomitant]
  3. NOVOLOG [Concomitant]
  4. ASPIRIN [Concomitant]

REACTIONS (1)
  - INJECTION SITE BRUISING [None]
